FAERS Safety Report 5387644-8 (Version None)
Quarter: 2007Q3

REPORT INFORMATION
  Report Type: 
  Country: None (occurrence: None)
  Receive Date: 20070712
  Receipt Date: 20070712
  Transmission Date: 20080115
  Serious: Yes (Life-Threatening, Hospitalization, Disabling, Other)
  Sender: FDA-Public Use
  Company Number: None

PATIENT
  Age: 61 Year
  Sex: Male
  Weight: 81.6475 kg

DRUGS (2)
  1. QUETIAPINE FUMARATE [Suspect]
     Indication: ANTIDEPRESSANT THERAPY
     Dosage: 400 MG BEDTIME-ONCE- PO
     Route: 048
     Dates: start: 20070124, end: 20070704
  2. QUETIAPINE FUMARATE [Suspect]
     Indication: ANTIDEPRESSANT THERAPY
     Dosage: 100 MG MORNING-ONCE- PO
     Route: 048
     Dates: start: 20070124, end: 20070704

REACTIONS (1)
  - NO ADVERSE DRUG REACTION [None]
